FAERS Safety Report 15732250 (Version 2)
Quarter: 2019Q2

REPORT INFORMATION
  Report Type: Report from Study
  Country: FR (occurrence: FR)
  Receive Date: 20181217
  Receipt Date: 20190626
  Transmission Date: 20190711
  Serious: Yes (Other)
  Sender: FDA-Public Use
  Company Number: FR-MYLANLABS-2018M1093730

PATIENT
  Age: 78 Year
  Sex: Female
  Weight: 51 kg

DRUGS (10)
  1. OXALIPLATIN. [Suspect]
     Active Substance: OXALIPLATIN
     Dosage: 102 MILLIGRAM, EVERY 15 DAYS
     Route: 065
     Dates: start: 20180502
  2. OXALIPLATIN. [Suspect]
     Active Substance: OXALIPLATIN
     Indication: PRODUCT USED FOR UNKNOWN INDICATION
     Dosage: 128 MG, (EVERY 15 DAYS)
     Route: 065
     Dates: start: 20180305
  3. ELVORINE [Suspect]
     Active Substance: LEUCOVORIN CALCIUM
     Indication: PANCREATIC NEUROENDOCRINE TUMOUR
     Dosage: 300 MILLIGRAM, BIMONTHLY,EVERY 15 DAYS
     Route: 065
     Dates: start: 20180305
  4. 5-FLUOROURACIL                     /00098801/ [Suspect]
     Active Substance: FLUOROURACIL
     Indication: PANCREATIC NEUROENDOCRINE TUMOUR
     Dosage: 600 MILLIGRAM, BIMONTHLY
     Route: 040
     Dates: start: 20180305
  5. FLUOROURACIL. [Suspect]
     Active Substance: FLUOROURACIL
     Dosage: 600 MILLIGRAM, EVERY 15 DAYS
     Route: 065
     Dates: start: 20180305
  6. ELOXATIN [Suspect]
     Active Substance: OXALIPLATIN
     Indication: PANCREATIC NEUROENDOCRINE TUMOUR
     Dosage: 128 MILLIGRAM, CYCLE, (EVERY 15 DAYS)
     Route: 065
     Dates: start: 20180305, end: 20180411
  7. AFINITOR [Suspect]
     Active Substance: EVEROLIMUS
     Indication: PANCREATIC NEUROENDOCRINE TUMOUR METASTATIC
     Dosage: 10 MG, QD
     Route: 065
     Dates: start: 20170712, end: 20180115
  8. 5-FLUOROURACIL                     /00098801/ [Suspect]
     Active Substance: FLUOROURACIL
     Dosage: 3600 MILLIGRAM, Q2W
     Route: 041
     Dates: start: 20180305
  9. FLUOROURACIL. [Suspect]
     Active Substance: FLUOROURACIL
     Indication: PRODUCT USED FOR UNKNOWN INDICATION
     Dosage: 3600 MG, EVERY 15 DAYS
     Route: 065
  10. ELOXATIN [Suspect]
     Active Substance: OXALIPLATIN
     Dosage: 102 MILLIGRAM, CYCLE, (EVERY 15 DAYS)
     Route: 065
     Dates: start: 20180502

REACTIONS (5)
  - Drug intolerance [Unknown]
  - Pancreatic neuroendocrine tumour metastatic [Unknown]
  - Thrombocytopenia [Recovered/Resolved]
  - Malignant neoplasm progression [Unknown]
  - Neuropathy peripheral [Not Recovered/Not Resolved]

NARRATIVE: CASE EVENT DATE: 20180425
